FAERS Safety Report 13241866 (Version 1)
Quarter: 2017Q1

REPORT INFORMATION
  Report Type: Spontaneous
  Country: US (occurrence: US)
  Receive Date: 20170216
  Receipt Date: 20170216
  Transmission Date: 20170428
  Serious: No
  Sender: FDA-Public Use
  Company Number: US-RELYPSA-RLY2016004701

PATIENT
  Age: 57 Year
  Sex: Male

DRUGS (16)
  1. TESTOSTERONE CYPIONATE. [Concomitant]
     Active Substance: TESTOSTERONE CYPIONATE
  2. SODIUM BICARBONATE. [Concomitant]
     Active Substance: SODIUM BICARBONATE
  3. LEVOTHYROXIN [Concomitant]
     Active Substance: LEVOTHYROXINE
  4. AMLODIPINE [Concomitant]
     Active Substance: AMLODIPINE BESYLATE
  5. ISOSORB                            /07346401/ [Concomitant]
  6. LOSARTAN. [Concomitant]
     Active Substance: LOSARTAN
  7. TERAZOSIN [Concomitant]
     Active Substance: TERAZOSIN\TERAZOSIN HYDROCHLORIDE
  8. GLIPIZDE [Concomitant]
     Active Substance: GLIPIZIDE
  9. LANTUS [Concomitant]
     Active Substance: INSULIN GLARGINE
  10. HYDRALAZINE [Concomitant]
     Active Substance: HYDRALAZINE HYDROCHLORIDE
  11. VELTASSA [Suspect]
     Active Substance: PATIROMER
     Indication: HYPERKALAEMIA
     Dosage: 8.4 G, QD
     Route: 048
     Dates: start: 201609
  12. SIMVASTATIN. [Concomitant]
     Active Substance: SIMVASTATIN
  13. CLONIDINE. [Concomitant]
     Active Substance: CLONIDINE
  14. VITAMIN E                          /00110501/ [Concomitant]
     Active Substance: TOCOPHEROL
  15. FUROSEMIDE. [Concomitant]
     Active Substance: FUROSEMIDE
  16. IRON [Concomitant]
     Active Substance: IRON

REACTIONS (2)
  - Peripheral swelling [Unknown]
  - Fluid retention [Unknown]

NARRATIVE: CASE EVENT DATE: 201612
